FAERS Safety Report 4953729-0 (Version None)
Quarter: 2006Q1

REPORT INFORMATION
  Report Type: 
  Country: None (occurrence: None)
  Receive Date: 20060327
  Receipt Date: 20060315
  Transmission Date: 20060701
  Serious: Yes (Other)
  Sender: FDA-Public Use
  Company Number: PHBS2006BR04055

PATIENT
  Age: 23 Year
  Sex: Female
  Weight: 60 kg

DRUGS (4)
  1. OXYTOCIN [Suspect]
     Dosage: 10IU IN 20 ML DISTILLED WATER
  2. BUPIVACAINE [Concomitant]
  3. FENTANYL [Concomitant]
  4. EPHEDRINE SUL CAP [Concomitant]

REACTIONS (4)
  - AGITATION [None]
  - HEADACHE [None]
  - HYPERTENSION [None]
  - PARAESTHESIA [None]
